FAERS Safety Report 12645543 (Version 1)
Quarter: 2016Q3

REPORT INFORMATION
  Report Type: Spontaneous
  Country: GB (occurrence: GB)
  Receive Date: 20160811
  Receipt Date: 20160811
  Transmission Date: 20161109
  Serious: Yes (Disabling, Other)
  Sender: FDA-Public Use
  Company Number: GB-MYLANLABS-2016M1032533

PATIENT

DRUGS (6)
  1. BUDESONIDE. [Concomitant]
     Active Substance: BUDESONIDE
     Dosage: 3 MG, UNK
  2. OMEPRAZOLE. [Concomitant]
     Active Substance: OMEPRAZOLE
     Dosage: 20 MG, UNK
  3. CO-AMILOZIDE [Concomitant]
     Active Substance: AMILORIDE HYDROCHLORIDE\HYDROCHLOROTHIAZIDE
     Dosage: UNK (2.5MG/25MG)
  4. ATENOLOL. [Concomitant]
     Active Substance: ATENOLOL
     Dosage: 50 MG, UNK
  5. AZATHIOPRINE. [Suspect]
     Active Substance: AZATHIOPRINE
     Indication: CROHN^S DISEASE
     Dosage: 100 MG, UNK
     Route: 048
     Dates: start: 20160622, end: 20160718
  6. AMITRIPTYLINE [Concomitant]
     Active Substance: AMITRIPTYLINE
     Dosage: 10 MG, UNK

REACTIONS (19)
  - Jaundice [Unknown]
  - Gout [Recovered/Resolved]
  - Asthenia [Unknown]
  - Decreased appetite [Recovered/Resolved]
  - Dizziness postural [Recovered/Resolved]
  - Disturbance in attention [Recovered/Resolved]
  - Yellow skin [Recovered/Resolved]
  - Neck pain [Unknown]
  - Listless [Unknown]
  - Asthenia [Recovered/Resolved]
  - Arthralgia [Unknown]
  - Headache [Unknown]
  - Abdominal distension [Recovered/Resolved]
  - Arthropathy [Unknown]
  - Ocular hyperaemia [Unknown]
  - Diarrhoea [Unknown]
  - Fatigue [Recovered/Resolved]
  - Hypotension [Unknown]
  - Somnolence [Unknown]

NARRATIVE: CASE EVENT DATE: 20160708
